FAERS Safety Report 8665610 (Version 2)
Quarter: 2013Q1

REPORT INFORMATION
  Report Type: Spontaneous
  Country: FI (occurrence: FI)
  Receive Date: 20120716
  Receipt Date: 20130226
  Transmission Date: 20140127
  Serious: Yes (Death, Life-Threatening, Other)
  Sender: FDA-Public Use
  Company Number: FI-TEVA-347095ISR

PATIENT
  Sex: Female

DRUGS (3)
  1. GASTER [Suspect]
     Indication: ABDOMINAL PAIN UPPER
     Dosage: 30 MILLIGRAM DAILY;
     Route: 048
     Dates: start: 20120206, end: 20120617
  2. GASTER [Suspect]
     Indication: FLANK PAIN
  3. PARACETAMOL [Concomitant]

REACTIONS (3)
  - Hepatic failure [Fatal]
  - Hepatic cirrhosis [Not Recovered/Not Resolved]
  - Haemorrhage [Unknown]
